FAERS Safety Report 11923144 (Version 1)
Quarter: 2016Q1

REPORT INFORMATION
  Report Type: Spontaneous
  Country: US (occurrence: US)
  Receive Date: 20160117
  Receipt Date: 20160117
  Transmission Date: 20160526
  Serious: Yes (Other)
  Sender: FDA-Public Use
  Company Number: US-ROCHE-1686012

PATIENT
  Sex: Female

DRUGS (6)
  1. BLEPHAMIDE (UNITED STATES) [Concomitant]
  2. ERIVEDGE [Suspect]
     Active Substance: VISMODEGIB
     Indication: DEMENTIA
     Route: 048
     Dates: start: 20151014
  3. BISACODYL. [Concomitant]
     Active Substance: BISACODYL
  4. ACETAMINOPHEN. [Concomitant]
     Active Substance: ACETAMINOPHEN
  5. ASPIRIN. [Concomitant]
     Active Substance: ASPIRIN
  6. CIPRO [Concomitant]
     Active Substance: CIPROFLOXACIN HYDROCHLORIDE

REACTIONS (2)
  - Swelling [Unknown]
  - Swelling face [Unknown]
